FAERS Safety Report 9130372 (Version 6)
Quarter: 2013Q3

REPORT INFORMATION
  Report Type: Spontaneous
  Country: US (occurrence: US)
  Receive Date: 20130228
  Receipt Date: 20130722
  Transmission Date: 20140515
  Serious: Yes (Hospitalization)
  Sender: FDA-Public Use
  Company Number: US-PFIZER INC-2013069452

PATIENT
  Age: 76 Year
  Sex: Male
  Weight: 71.66 kg

DRUGS (7)
  1. SUTENT [Suspect]
     Indication: METASTATIC RENAL CELL CARCINOMA
     Dosage: 50 MG, 1X/DAY
     Route: 048
     Dates: start: 20130204, end: 20130414
  2. WARFARIN SODIUM [Concomitant]
     Dosage: UNK
  3. LISINOPRIL [Concomitant]
     Dosage: UNK
  4. CRESTOR [Concomitant]
     Dosage: UNK
  5. LEVOTHYROXINE [Concomitant]
  6. COUMADIN [Concomitant]
     Dosage: UNK
  7. LASIX [Concomitant]
     Dosage: UNK

REACTIONS (13)
  - Diarrhoea [Recovered/Resolved]
  - Decreased appetite [Recovered/Resolved]
  - Weight decreased [Recovered/Resolved]
  - Fatigue [Recovered/Resolved]
  - Pleural effusion [Recovered/Resolved]
  - Rash [Unknown]
  - Thyroid function test abnormal [Unknown]
  - Glossodynia [Unknown]
  - Hypothyroidism [Unknown]
  - Feeling abnormal [Unknown]
  - Local swelling [Not Recovered/Not Resolved]
  - Oral pain [Recovered/Resolved]
  - Dysgeusia [Recovered/Resolved]
